FAERS Safety Report 4498669-9 (Version None)
Quarter: 2004Q3

REPORT INFORMATION
  Report Type: 
  Country: None (occurrence: None)
  Receive Date: 20040927
  Receipt Date: 20040618
  Transmission Date: 20050211
  Serious: No
  Sender: FDA-Public Use
  Company Number: USA040670654

PATIENT
  Age: 11 Year
  Sex: Male

DRUGS (1)
  1. STRATTERA [Suspect]
     Dosage: 18 MG/1 DAY

REACTIONS (3)
  - ANOREXIA [None]
  - DEPRESSED MOOD [None]
  - STOMACH DISCOMFORT [None]
